FAERS Safety Report 5843651-X (Version None)
Quarter: 2008Q3

REPORT INFORMATION
  Report Type: 
  Country: None (occurrence: None)
  Receive Date: 20080813
  Receipt Date: 20080807
  Transmission Date: 20090109
  Serious: Yes (Death, Other)
  Sender: FDA-Public Use
  Company Number: AT-CELGENEUS-009-21880-08071783

PATIENT
  Sex: Female
  Weight: 118 kg

DRUGS (10)
  1. REVLIMID [Suspect]
     Indication: MULTIPLE MYELOMA
     Route: 048
     Dates: start: 20080507, end: 20080723
  2. ACEMIN [Concomitant]
     Indication: DRUG USE FOR UNKNOWN INDICATION
     Route: 065
  3. THROMBO ASS [Concomitant]
     Indication: DRUG USE FOR UNKNOWN INDICATION
     Route: 065
  4. AMARYL [Concomitant]
     Indication: DRUG USE FOR UNKNOWN INDICATION
     Route: 065
  5. LANSOPRAZOLE [Concomitant]
     Indication: DRUG USE FOR UNKNOWN INDICATION
     Route: 065
  6. DAFLON [Concomitant]
     Indication: DRUG USE FOR UNKNOWN INDICATION
     Route: 065
  7. LYRICA [Concomitant]
     Indication: DRUG USE FOR UNKNOWN INDICATION
     Route: 065
  8. LASIX [Concomitant]
     Indication: DRUG USE FOR UNKNOWN INDICATION
     Route: 065
  9. AMITRIPTYLINE HCL [Concomitant]
     Indication: DRUG USE FOR UNKNOWN INDICATION
     Route: 065
  10. IVADAL [Concomitant]
     Indication: DRUG USE FOR UNKNOWN INDICATION
     Route: 065

REACTIONS (2)
  - DEEP VEIN THROMBOSIS [None]
  - PULMONARY EMBOLISM [None]
